FAERS Safety Report 24651498 (Version 3)
Quarter: 2025Q1

REPORT INFORMATION
  Report Type: Report from Study
  Country: US (occurrence: US)
  Receive Date: 20241122
  Receipt Date: 20250213
  Transmission Date: 20250408
  Serious: Yes (Disabling, Other)
  Sender: ROCHE
  Company Number: US-ROCHE-10000133737

PATIENT
  Age: 35 Year
  Sex: Female

DRUGS (2)
  1. OCREVUS [Suspect]
     Active Substance: OCRELIZUMAB
     Indication: Multiple sclerosis
     Route: 065
  2. Mavenclad (cladribine) [Concomitant]

REACTIONS (5)
  - Loss of personal independence in daily activities [Unknown]
  - Multiple sclerosis [Unknown]
  - JC polyomavirus test positive [Unknown]
  - Drug ineffective [Unknown]
  - Multiple sclerosis relapse [Unknown]
